FAERS Safety Report 15505233 (Version 1)
Quarter: 2018Q4

REPORT INFORMATION
  Report Type: Spontaneous
  Country: IT (occurrence: IT)
  Receive Date: 20181016
  Receipt Date: 20181016
  Transmission Date: 20190205
  Serious: Yes (Other)
  Sender: FDA-Public Use
  Company Number: IT-BRISTOL-MYERS SQUIBB COMPANY-BMS-2018-093503

PATIENT
  Age: 85 Year
  Sex: Female
  Weight: 62 kg

DRUGS (1)
  1. OPDIVO [Suspect]
     Active Substance: NIVOLUMAB
     Indication: LUNG NEOPLASM
     Dosage: 170 MG, QCYCLE
     Route: 042
     Dates: start: 20180313, end: 20180424

REACTIONS (5)
  - Prescribed underdose [Unknown]
  - Proteinuria [Recovered/Resolved]
  - Nephrotic syndrome [Recovered/Resolved]
  - Hypoalbuminaemia [Recovered/Resolved]
  - Generalised oedema [Recovered/Resolved]

NARRATIVE: CASE EVENT DATE: 20180508
